FAERS Safety Report 6334652-6 (Version None)
Quarter: 2009Q3

REPORT INFORMATION
  Report Type: 
  Country: None (occurrence: None)
  Receive Date: 20090831
  Receipt Date: 20090812
  Transmission Date: 20100115
  Serious: No
  Sender: FDA-Public Use
  Company Number: JP-ROCHE-652009

PATIENT
  Age: 4 Year
  Sex: Male

DRUGS (2)
  1. TAMIFLU [Suspect]
     Indication: INFLUENZA
     Route: 048
     Dates: start: 20090809, end: 20090809
  2. TAMIFLU [Suspect]
     Route: 048
     Dates: start: 20090810

REACTIONS (3)
  - ACCIDENTAL OVERDOSE [None]
  - AGITATION [None]
  - SOMNOLENCE [None]
